FAERS Safety Report 7961339-6 (Version None)
Quarter: 2011Q4

REPORT INFORMATION
  Report Type: 
  Country: None (occurrence: None)
  Receive Date: 20111207
  Receipt Date: 20111128
  Transmission Date: 20120403
  Serious: Yes (Death, Other)
  Sender: FDA-Public Use
  Company Number: JP-GENZYME-THYM-1002635

PATIENT
  Sex: Male
  Weight: 58 kg

DRUGS (54)
  1. THYMOGLOBULIN [Suspect]
     Indication: BONE MARROW CONDITIONING REGIMEN
     Dosage: 150 MG, QD
     Route: 042
     Dates: start: 20110523, end: 20110524
  2. AZACITIDINE [Concomitant]
     Indication: ACUTE MYELOID LEUKAEMIA
     Dosage: UNK
     Dates: start: 20110518, end: 20110524
  3. ALLOPURINOL [Concomitant]
     Indication: ACUTE MYELOID LEUKAEMIA
     Dosage: UNK
     Dates: start: 20110520, end: 20110613
  4. POVIDONE IODINE [Concomitant]
     Indication: INFECTION PROPHYLAXIS
     Dosage: UNK
     Dates: start: 20110519, end: 20110601
  5. FLUDARABINE PHOSPHATE [Concomitant]
     Indication: ACUTE MYELOID LEUKAEMIA
     Dosage: UNK
     Dates: start: 20110520, end: 20110524
  6. METHYLPREDNISOLONE SODIUM SUCCINATE [Concomitant]
     Indication: ACUTE MYELOID LEUKAEMIA
     Dosage: UNK
     Dates: start: 20110523, end: 20110524
  7. LOXOPROFEN SODIUM [Concomitant]
     Indication: BACK PAIN
     Dosage: UNK
     Dates: start: 20110524, end: 20110614
  8. MENATETRENONE [Concomitant]
     Indication: PROPHYLAXIS
     Dosage: UNK
     Dates: start: 20110526, end: 20110603
  9. MORPHINE HYDROCHLORIDE [Concomitant]
     Indication: BACK PAIN
     Dosage: UNK
     Dates: start: 20110530, end: 20110606
  10. MAGNESIUM SULFATE [Concomitant]
     Indication: PROPHYLAXIS
     Dosage: UNK
     Dates: start: 20110531, end: 20110623
  11. INSULIN HUMAN [Concomitant]
     Indication: PROPHYLAXIS
     Dosage: UNK
     Dates: start: 20110531, end: 20110623
  12. LOXOPROFEN SODIUM [Concomitant]
     Indication: ACUTE MYELOID LEUKAEMIA
     Dosage: UNK
     Dates: start: 20110523, end: 20110524
  13. TACROLIMUS [Concomitant]
     Indication: PROPHYLAXIS
     Dosage: UNK
     Dates: start: 20110525, end: 20110623
  14. FILGRASTIM [Concomitant]
     Indication: PROPHYLAXIS
     Dosage: UNK
     Dates: start: 20110527, end: 20110623
  15. OXYCODONE HCL [Concomitant]
     Indication: BACK PAIN
     Dosage: UNK
     Dates: start: 20110530, end: 20110606
  16. SENNOSIDE [Concomitant]
     Indication: CONSTIPATION PROPHYLAXIS
     Dosage: UNK
     Dates: start: 20110531, end: 20110601
  17. THROMBOMODULIN ALFA [Concomitant]
     Indication: THROMBOSIS PROPHYLAXIS
     Dosage: UNK
     Dates: start: 20110601, end: 20110614
  18. DEXTROSE [Concomitant]
     Indication: PROPHYLAXIS
     Dosage: UNK
     Dates: start: 20110606, end: 20110609
  19. HEPARIN [Concomitant]
     Dosage: UNK
     Dates: start: 20110520, end: 20110531
  20. HYDROCORTISONE [Concomitant]
     Dosage: UNK
     Dates: start: 20110606, end: 20110606
  21. LANSOPRAZOLE [Concomitant]
     Indication: PROPHYLAXIS
     Dosage: UNK
     Dates: start: 20110618, end: 20110623
  22. FENTANYL-100 [Concomitant]
     Indication: BACK PAIN
     Dosage: UNK
     Dates: start: 20110606, end: 20110621
  23. AZULENE SODIUM SULFONATE [Concomitant]
     Indication: INFECTION PROPHYLAXIS
     Dosage: UNK
     Dates: start: 20110608, end: 20110623
  24. ANTIBIOTICS-RESISTANT LACTIC ACID BACTERIAE [Concomitant]
     Indication: PROPHYLAXIS
     Dosage: UNK
     Dates: start: 20101128, end: 20110605
  25. VALPROATE SODIUM [Concomitant]
     Indication: CONVULSION PROPHYLAXIS
     Dosage: UNK
     Dates: start: 20110520, end: 20110527
  26. ITRACONAZOLE [Concomitant]
     Indication: INFECTION PROPHYLAXIS
     Dosage: UNK
     Dates: start: 20101117, end: 20110524
  27. MICAFUNGIN SODIUM [Concomitant]
     Indication: INFECTION PROPHYLAXIS
     Dosage: UNK
     Dates: start: 20110525, end: 20110531
  28. HYDROCORTISONE [Concomitant]
     Indication: ALLERGY PROPHYLAXIS
     Dosage: UNK
     Dates: start: 20110526, end: 20110526
  29. INITIATION MEDIUM [Concomitant]
     Indication: PROPHYLAXIS
     Dosage: UNK
     Dates: start: 20110606, end: 20110609
  30. MANGANESE CHLORIDE ZINC SULFATE COMBINED DRUG [Concomitant]
     Indication: PROPHYLAXIS
     Dosage: UNK
     Dates: start: 20110606, end: 20110609
  31. SODIUM CHLORIDE [Concomitant]
     Indication: PROPHYLAXIS
     Dosage: UNK
     Dates: start: 20110609, end: 20110623
  32. URSODIOL [Concomitant]
     Indication: LIVER DISORDER
     Dosage: UNK
     Dates: start: 20110507, end: 20110619
  33. CARMELLOSE SODIUM [Concomitant]
     Indication: CONSTIPATION PROPHYLAXIS
     Dosage: UNK
     Dates: start: 20110520, end: 20110613
  34. ETOPOSIDE [Concomitant]
     Indication: ACUTE MYELOID LEUKAEMIA
     Dosage: UNK
     Dates: start: 20110520, end: 20110520
  35. BUSULFAN [Concomitant]
     Indication: ACUTE MYELOID LEUKAEMIA
     Dosage: UNK
     Dates: start: 20110521, end: 20110524
  36. CLEMASTINE FUMARATE [Concomitant]
     Indication: ACUTE MYELOID LEUKAEMIA
     Dosage: UNK
     Dates: start: 20110523, end: 20110524
  37. MAGNESIUM SULFATE [Concomitant]
     Indication: CONSTIPATION
     Dosage: UNK
     Dates: start: 20110530, end: 20110610
  38. RILMAZAFONE HYDROCHLORIDE [Concomitant]
     Indication: INSOMNIA
     Dosage: UNK
     Dates: start: 20110531, end: 20110610
  39. AMINO ACID PREPARATIONS FOR RENAL INSUFFICIENCY [Concomitant]
     Indication: PROPHYLAXIS
     Dosage: UNK
     Dates: start: 20110606, end: 20110609
  40. ACYCLOVIR [Concomitant]
     Indication: INFECTION PROPHYLAXIS
     Dosage: UNK
     Dates: start: 20110106, end: 20110606
  41. HEPARIN [Concomitant]
     Indication: PROPHYLAXIS
     Dosage: UNK
     Dates: start: 20110518, end: 20110619
  42. CELECOXIB [Concomitant]
     Indication: INFECTION PROPHYLAXIS
     Dosage: UNK
     Dates: start: 20110528, end: 20110530
  43. NATEGLINIDE [Concomitant]
     Indication: DIABETES MELLITUS
     Dosage: UNK
     Dates: start: 20110528, end: 20110605
  44. METOCLOPRAMIDE [Concomitant]
     Indication: PROPHYLAXIS OF NAUSEA AND VOMITING
     Dosage: UNK
     Dates: start: 20110530, end: 20110608
  45. FAMOTIDINE [Concomitant]
     Indication: PROPHYLAXIS
     Dosage: UNK
     Dates: start: 20101117, end: 20110615
  46. PREDNISOLONE [Concomitant]
     Indication: HISTIOCYTOSIS HAEMATOPHAGIC
     Dosage: UNK
     Dates: start: 20110507, end: 20110605
  47. LEVOFLOXACIN [Concomitant]
     Indication: INFECTION PROPHYLAXIS
     Dosage: UNK
     Dates: start: 20110520, end: 20110526
  48. ALENDRONATE SODIUM [Concomitant]
     Indication: PROPHYLAXIS
     Dosage: UNK
     Dates: start: 20110526, end: 20110603
  49. MIXED AMINO ACID CARBOHYDRATE ELECTROLYTE VITAMIN COMBINDED DRUG [Concomitant]
     Indication: PROPHYLAXIS
     Dosage: UNK
     Dates: start: 20110604, end: 20110610
  50. SULFAMETHOPRIM [Concomitant]
     Indication: INFECTION PROPHYLAXIS
     Dosage: UNK
     Dates: start: 20110517, end: 20110521
  51. GRANISETRON HCL [Concomitant]
     Indication: PROPHYLAXIS OF NAUSEA AND VOMITING
     Dosage: UNK
     Dates: start: 20110518, end: 20110524
  52. MYCOPHENOLATE MOFETIL [Concomitant]
     Indication: PROPHYLAXIS
     Dosage: UNK
     Dates: start: 20110523, end: 20110620
  53. CIPROFLOXACIN [Concomitant]
     Indication: INFECTION PROPHYLAXIS
     Dosage: UNK
     Dates: start: 20110525, end: 20110530
  54. MULTIPLE VITAMIN FOR TOTAL PARENTERAL NUTRITION [Concomitant]
     Indication: PROPHYLAXIS
     Dosage: UNK
     Dates: start: 20110609, end: 20110623

REACTIONS (10)
  - HAEMATURIA [None]
  - ACUTE GRAFT VERSUS HOST DISEASE [None]
  - HYPOGAMMAGLOBULINAEMIA [None]
  - OEDEMA [None]
  - ANTITHROMBIN III DECREASED [None]
  - AGRANULOCYTOSIS [None]
  - BLOOD PRESSURE DECREASED [None]
  - BRONCHOPULMONARY ASPERGILLOSIS [None]
  - HICCUPS [None]
  - HYPOALBUMINAEMIA [None]
